FAERS Safety Report 8483178-2 (Version None)
Quarter: 2012Q3

REPORT INFORMATION
  Report Type: 
  Country: None (occurrence: None)
  Receive Date: 20120702
  Receipt Date: 20120625
  Transmission Date: 20120928
  Serious: Yes (Hospitalization)
  Sender: FDA-Public Use
  Company Number: FR-PFIZER INC-2012151526

PATIENT
  Age: 21 Year
  Sex: Female

DRUGS (3)
  1. ZYVOX [Suspect]
     Indication: INFECTION
     Dosage: 600 MG, 2X/DAY
     Route: 042
     Dates: start: 20120514, end: 20120518
  2. BACTRIM [Concomitant]
  3. CUBICIN [Concomitant]

REACTIONS (1)
  - HEPATITIS [None]
